FAERS Safety Report 5683359-7 (Version None)
Quarter: 2008Q1

REPORT INFORMATION
  Report Type: 
  Country: None (occurrence: None)
  Receive Date: 20080327
  Receipt Date: 20080318
  Transmission Date: 20080703
  Serious: Yes (Disabling)
  Sender: FDA-Public Use
  Company Number: NO-PFIZER INC-2008024121

PATIENT
  Sex: Male

DRUGS (6)
  1. DETRUSITOL SR [Suspect]
     Indication: INCONTINENCE
     Route: 048
     Dates: start: 20030101, end: 20070801
  2. PRAVACHOL [Concomitant]
     Route: 048
  3. RISPERDAL [Concomitant]
     Route: 048
  4. VITAMIN B-12 [Concomitant]
     Indication: VITAMIN B12 DECREASED
     Route: 030
  5. SELO-ZOK [Concomitant]
     Route: 048
  6. ALBYL-E [Concomitant]
     Route: 048

REACTIONS (2)
  - COGNITIVE DISORDER [None]
  - HYPERTONIC BLADDER [None]
